FAERS Safety Report 8190648-3 (Version None)
Quarter: 2012Q1

REPORT INFORMATION
  Report Type: 
  Country: None (occurrence: None)
  Receive Date: 20120307
  Receipt Date: 20120224
  Transmission Date: 20120608
  Serious: Yes (Hospitalization)
  Sender: FDA-Public Use
  Company Number: GB-ROCHE-1045432

PATIENT
  Sex: Female
  Weight: 55.07 kg

DRUGS (1)
  1. RANIBIZUMAB [Suspect]
     Indication: DIABETIC RETINAL OEDEMA
     Route: 050
     Dates: start: 20110307

REACTIONS (8)
  - PELVIC FRACTURE [None]
  - NEPHROTIC SYNDROME [None]
  - GLOMERULONEPHRITIS [None]
  - ANAEMIA [None]
  - UROSEPSIS [None]
  - RENAL FAILURE [None]
  - RIB FRACTURE [None]
  - URINARY TRACT INFECTION [None]
